FAERS Safety Report 16229666 (Version 2)
Quarter: 2019Q2

REPORT INFORMATION
  Report Type: Spontaneous
  Country: KR (occurrence: KR)
  Receive Date: 20190423
  Receipt Date: 20190506
  Transmission Date: 20190711
  Serious: Yes (Other)
  Sender: FDA-Public Use
  Company Number: KR-PFIZER INC-2019174066

PATIENT
  Age: 64 Year
  Sex: Female

DRUGS (1)
  1. XALKORI [Suspect]
     Active Substance: CRIZOTINIB
     Indication: LUNG NEOPLASM MALIGNANT
     Dosage: 250 MG, 2X/DAY
     Route: 048
     Dates: start: 201811

REACTIONS (12)
  - Hyperlipidaemia [Recovering/Resolving]
  - Neoplasm progression [Recovering/Resolving]
  - Hepatitis [Recovering/Resolving]
  - Rhinitis allergic [Recovering/Resolving]
  - Dyspepsia [Recovering/Resolving]
  - Hyperkalaemia [Recovering/Resolving]
  - Decreased appetite [Recovering/Resolving]
  - Swelling face [Recovering/Resolving]
  - Essential hypertension [Recovering/Resolving]
  - Oesophagitis [Recovering/Resolving]
  - Constipation [Recovering/Resolving]
  - Joint swelling [Recovering/Resolving]
